FAERS Safety Report 10533350 (Version 1)
Quarter: 2014Q4

REPORT INFORMATION
  Report Type: Spontaneous
  Country: TR (occurrence: None)
  Receive Date: 20141020
  Receipt Date: 20141020
  Transmission Date: 20150529
  Serious: Yes (Hospitalization)
  Sender: FDA-Public Use
  Company Number: IMP_07955_2014

PATIENT
  Age: 12 Year
  Sex: Male

DRUGS (1)
  1. DIVALPROEX SODIUM. [Suspect]
     Active Substance: DIVALPROEX SODIUM
     Indication: PRODUCT USED FOR UNKNOWN INDICATION
     Dosage: DF

REACTIONS (5)
  - Face oedema [None]
  - White blood cell count decreased [None]
  - Lymphocyte morphology abnormal [None]
  - Drug reaction with eosinophilia and systemic symptoms [None]
  - Haemoglobin decreased [None]
